FAERS Safety Report 10073720 (Version 2)
Quarter: 2014Q2

REPORT INFORMATION
  Report Type: Report from Study
  Country: CN (occurrence: CN)
  Receive Date: 20140411
  Receipt Date: 20140411
  Transmission Date: 20141212
  Serious: Yes (Hospitalization)
  Sender: FDA-Public Use
  Company Number: CN-INCYTE CORPORATION-2014IN000805

PATIENT
  Age: 62 Year
  Sex: Male
  Weight: 79 kg

DRUGS (8)
  1. INC424 [Suspect]
     Indication: MYELOFIBROSIS
     Dosage: 15 MG, BID
     Route: 048
     Dates: start: 20120924, end: 20121220
  2. INC424 [Suspect]
     Dosage: 10 MG, BID
     Route: 048
     Dates: start: 20121221, end: 20130204
  3. INC424 [Suspect]
     Dosage: 15 MG, BID
     Route: 048
     Dates: start: 20130205, end: 20130312
  4. INC424 [Suspect]
     Dosage: 10 MG, BID
     Route: 048
     Dates: start: 20130313, end: 20130604
  5. INC424 [Suspect]
     Dosage: 5 MG, BID
     Route: 048
     Dates: start: 20130605, end: 20131120
  6. INC424 [Suspect]
     Dosage: 10 MG, BID
     Route: 048
     Dates: start: 20131121, end: 20131225
  7. INC424 [Suspect]
     Dosage: 20 MG, BID
     Route: 048
     Dates: start: 20131226, end: 20140212
  8. INC424 [Suspect]
     Dosage: 10 MG, BID
     Route: 048
     Dates: start: 20140213

REACTIONS (1)
  - Calculus bladder [Recovered/Resolved]
